FAERS Safety Report 25265193 (Version 1)
Quarter: 2025Q2

REPORT INFORMATION
  Report Type: Report from Study
  Country: US (occurrence: US)
  Receive Date: 20250502
  Receipt Date: 20250502
  Transmission Date: 20250716
  Serious: Yes (Hospitalization, Other)
  Sender: TAKEDA
  Company Number: US-TAKEDA-2025TUS042431

PATIENT
  Sex: Male

DRUGS (10)
  1. FRUQUINTINIB [Suspect]
     Active Substance: FRUQUINTINIB
     Indication: Colon cancer
  2. ELIQUIS [Concomitant]
     Active Substance: APIXABAN
  3. METHOCARBAMOL [Concomitant]
     Active Substance: METHOCARBAMOL
  4. NOVOLOG [Concomitant]
     Active Substance: INSULIN ASPART
  5. OXYCODONE [Concomitant]
     Active Substance: OXYCODONE
  6. MAGNESIUM [Concomitant]
     Active Substance: MAGNESIUM
  7. TOUJEO [Concomitant]
     Active Substance: INSULIN GLARGINE
  8. VIAGRA [Concomitant]
     Active Substance: SILDENAFIL CITRATE
  9. VITAMIN B COMPLEX [Concomitant]
     Active Substance: CYANOCOBALAMIN\DEXPANTHENOL\NIACINAMIDE\PYRIDOXINE HYDROCHLORIDE\RIBOFLAVIN 5^-PHOSPHATE SODIUM\THIA
  10. ZINC [Concomitant]
     Active Substance: ZINC

REACTIONS (1)
  - Bile duct stenosis [Recovering/Resolving]
